FAERS Safety Report 21997676 (Version 10)
Quarter: 2023Q2

REPORT INFORMATION
  Report Type: Spontaneous
  Country: CA (occurrence: CA)
  Receive Date: 20230216
  Receipt Date: 20230617
  Transmission Date: 20230722
  Serious: Yes (Other)
  Sender: FDA-Public Use
  Company Number: CA-CELLTRION INC.-2023CA002522

PATIENT

DRUGS (4)
  1. INFLECTRA [Suspect]
     Active Substance: INFLIXIMAB-DYYB
     Indication: Rheumatoid arthritis
     Dosage: 243 MG, EVERY 8 WEEK (INDUCTION W0,2,6 THEN MAINTENANCE Q8 WEEKS)
     Route: 042
     Dates: start: 20230113, end: 20230113
  2. INFLECTRA [Suspect]
     Active Substance: INFLIXIMAB-DYYB
     Dosage: 246MG (3MG/KG),INDUCTION W0,2,6 THEN MAINTENANCE Q8 WEEKS
     Route: 042
     Dates: start: 20230308, end: 20230404
  3. INFLECTRA [Suspect]
     Active Substance: INFLIXIMAB-DYYB
     Dosage: 246 MG, WEEK 6 DOSE
     Route: 042
     Dates: start: 20230404
  4. HYDROXYCHLOROQUINE [Concomitant]
     Active Substance: HYDROXYCHLOROQUINE
     Dosage: UNK

REACTIONS (19)
  - Dyspnoea [Unknown]
  - Pruritus [Recovering/Resolving]
  - Inappropriate schedule of product administration [Unknown]
  - COVID-19 [Recovering/Resolving]
  - Skin ulcer [Recovering/Resolving]
  - Respiratory tract congestion [Unknown]
  - Chest pain [Not Recovered/Not Resolved]
  - Cough [Recovered/Resolved]
  - Influenza [Unknown]
  - Dysphonia [Not Recovered/Not Resolved]
  - Rhinorrhoea [Unknown]
  - Nasal congestion [Not Recovered/Not Resolved]
  - Headache [Unknown]
  - Fatigue [Unknown]
  - Chills [Unknown]
  - Malaise [Unknown]
  - Asthenia [Unknown]
  - Neck pain [Unknown]
  - Condition aggravated [Unknown]

NARRATIVE: CASE EVENT DATE: 20230101
